FAERS Safety Report 4625736-9 (Version None)
Quarter: 2005Q1

REPORT INFORMATION
  Report Type: 
  Country: None (occurrence: None)
  Receive Date: 20050330
  Receipt Date: 20050310
  Transmission Date: 20050727
  Serious: Yes (Other)
  Sender: FDA-Public Use
  Company Number: JP_050205863

PATIENT
  Age: 23 Year
  Sex: Male

DRUGS (6)
  1. ZYPREXA [Suspect]
     Indication: SCHIZOPHRENIA
     Dosage: 20 MG DAY
  2. LEVOTOMIN (LEVOMEPROMAZINE MALEATE) [Concomitant]
  3. ARTANE [Concomitant]
  4. DEPAS (ETIZOLAM) [Concomitant]
  5. LENDORM [Concomitant]
  6. LODOPIN (ZOTEPINE) [Concomitant]

REACTIONS (3)
  - EPILEPSY [None]
  - FALL [None]
  - GAZE PALSY [None]
